FAERS Safety Report 24883107 (Version 3)
Quarter: 2025Q1

REPORT INFORMATION
  Report Type: Other
  Country: US (occurrence: US)
  Receive Date: 20250124
  Receipt Date: 20250321
  Transmission Date: 20250409
  Serious: Yes (Other)
  Sender: TRAVERE THERAPEUTICS
  Company Number: US-TRAVERE-2025TVT00056

PATIENT
  Age: 59 Year
  Sex: Male

DRUGS (8)
  1. FILSPARI [Suspect]
     Active Substance: SPARSENTAN
     Indication: IgA nephropathy
     Route: 048
     Dates: start: 20241108
  2. FILSPARI [Suspect]
     Active Substance: SPARSENTAN
     Indication: Pulmonary blastomycosis
     Route: 048
  3. FILSPARI [Suspect]
     Active Substance: SPARSENTAN
     Indication: Benign prostatic hyperplasia
  4. FILSPARI [Suspect]
     Active Substance: SPARSENTAN
     Indication: Chronic kidney disease
  5. FILSPARI [Suspect]
     Active Substance: SPARSENTAN
     Indication: Nephritic syndrome
  6. FILSPARI [Suspect]
     Active Substance: SPARSENTAN
     Indication: Hypertensive nephropathy
  7. FILSPARI [Suspect]
     Active Substance: SPARSENTAN
     Indication: Haematuria
  8. FILSPARI [Suspect]
     Active Substance: SPARSENTAN
     Indication: Proteinuria

REACTIONS (5)
  - Hypotension [Unknown]
  - Glomerular filtration rate decreased [None]
  - Decreased appetite [Unknown]
  - Dizziness [Unknown]
  - Blood creatinine increased [None]

NARRATIVE: CASE EVENT DATE: 20241201
